FAERS Safety Report 10886597 (Version 2)
Quarter: 2015Q1

REPORT INFORMATION
  Report Type: Spontaneous
  Country: CN (occurrence: CN)
  Receive Date: 20150304
  Receipt Date: 20150331
  Transmission Date: 20150721
  Serious: Yes (Death)
  Sender: FDA-Public Use
  Company Number: CN-BAYER-2015-032854

PATIENT
  Age: 43 Year
  Sex: Male

DRUGS (1)
  1. NEXAVAR [Suspect]
     Active Substance: SORAFENIB
     Indication: HEPATOCELLULAR CARCINOMA
     Dosage: 400 MG, BID
     Route: 048
     Dates: start: 20150206

REACTIONS (1)
  - Death [Fatal]

NARRATIVE: CASE EVENT DATE: 20150223
